FAERS Safety Report 4428573-3 (Version None)
Quarter: 2004Q3

REPORT INFORMATION
  Report Type: 
  Country: None (occurrence: None)
  Receive Date: 20040816
  Receipt Date: 20040802
  Transmission Date: 20050211
  Serious: Yes (Hospitalization)
  Sender: FDA-Public Use
  Company Number: HQWYE847105FEB04

PATIENT
  Age: 45 Year
  Sex: Female
  Weight: 60.38 kg

DRUGS (2)
  1. RAPAMUNE [Suspect]
     Indication: PROPHYLAXIS AGAINST TRANSPLANT REJECTION
     Dosage: 7 MG 1 X PER 1 DAY, ORAL
     Route: 048
     Dates: start: 20030813, end: 20040208
  2. MYCOPHENOLATE MOFETIL (MYCOPHENOLAET MOFETIL) [Suspect]
     Indication: PROPHYLAXIS AGAINST TRANSPLANT REJECTION

REACTIONS (12)
  - DRUG INEFFECTIVE [None]
  - ELECTROCARDIOGRAM T WAVE PEAKED [None]
  - HAEMATOCRIT DECREASED [None]
  - HAEMODIALYSIS [None]
  - HAEMOGLOBIN DECREASED [None]
  - KIDNEY TRANSPLANT REJECTION [None]
  - LYMPHADENOPATHY [None]
  - OEDEMA PERIPHERAL [None]
  - PNEUMONIA [None]
  - RENAL DISORDER [None]
  - RENAL TUBULAR NECROSIS [None]
  - WHITE BLOOD CELL COUNT DECREASED [None]
